FAERS Safety Report 10371781 (Version 1)
Quarter: 2014Q3

REPORT INFORMATION
  Report Type: Spontaneous
  Country: DE (occurrence: DE)
  Receive Date: 20140808
  Receipt Date: 20140808
  Transmission Date: 20150326
  Serious: Yes (Death)
  Sender: FDA-Public Use
  Company Number: DE-PFIZER INC-2014221211

PATIENT
  Age: 65 Year
  Sex: Male

DRUGS (2)
  1. LONOLOX [Suspect]
     Active Substance: MINOXIDIL
     Indication: HYPERTENSION
     Dosage: UNK
     Dates: start: 2007
  2. LONOLOX [Suspect]
     Active Substance: MINOXIDIL
     Indication: CORONARY ARTERY DISEASE

REACTIONS (1)
  - Oedema [Fatal]

NARRATIVE: CASE EVENT DATE: 2007
